FAERS Safety Report 5704369-7 (Version None)
Quarter: 2008Q2

REPORT INFORMATION
  Report Type: 
  Country: None (occurrence: None)
  Receive Date: 20080414
  Receipt Date: 20080404
  Transmission Date: 20081010
  Serious: No
  Sender: FDA-Public Use
  Company Number: A0708166A

PATIENT
  Age: 48 Year
  Sex: Female

DRUGS (6)
  1. AVANDIA [Suspect]
     Indication: DRUG USE FOR UNKNOWN INDICATION
     Dosage: 8MG PER DAY
     Route: 048
     Dates: start: 20070705
  2. PANTOPRAZOLE SODIUM [Concomitant]
  3. WELLBUTRIN XL [Concomitant]
     Dosage: 300MG PER DAY
  4. LIPITOR [Concomitant]
  5. SYNTHROID [Concomitant]
  6. METFORMIN HCL [Concomitant]

REACTIONS (1)
  - THYROID FUNCTION TEST ABNORMAL [None]
